FAERS Safety Report 14838495 (Version 1)
Quarter: 2018Q2

REPORT INFORMATION
  Report Type: Report from Study
  Country: KR (occurrence: KR)
  Receive Date: 20180502
  Receipt Date: 20180502
  Transmission Date: 20180711
  Serious: Yes (Hospitalization)
  Sender: FDA-Public Use
  Company Number: KR-EISAI MEDICAL RESEARCH-EC-2015-003462

PATIENT
  Age: 57 Year
  Sex: Female
  Weight: 50.4 kg

DRUGS (13)
  1. KOREAEUNDAN OMEGA [Concomitant]
  2. LYRICA [Concomitant]
     Active Substance: PREGABALIN
  3. HALAVEN [Suspect]
     Active Substance: ERIBULIN MESYLATE
     Route: 041
     Dates: start: 20150126, end: 20150316
  4. DONGA GASTER [Concomitant]
  5. TARGIN PR [Concomitant]
  6. MEGACE [Concomitant]
     Active Substance: MEGESTROL ACETATE
  7. HALAVEN [Suspect]
     Active Substance: ERIBULIN MESYLATE
     Indication: BREAST CANCER METASTATIC
     Route: 041
     Dates: start: 20141125, end: 20150112
  8. HALAVEN [Suspect]
     Active Substance: ERIBULIN MESYLATE
     Route: 041
     Dates: start: 20150330, end: 20150518
  9. FOSAMAX PLUS D [Concomitant]
     Active Substance: ALENDRONATE SODIUM\CHOLECALCIFEROL
  10. SELENASE T [Concomitant]
  11. DICAMAX [Concomitant]
  12. CENTRUM [Concomitant]
     Active Substance: VITAMINS
  13. MAG-B [Concomitant]

REACTIONS (1)
  - Pyrexia [Recovered/Resolved]

NARRATIVE: CASE EVENT DATE: 20150127
